FAERS Safety Report 20862385 (Version 1)
Quarter: 2022Q2

REPORT INFORMATION
  Report Type: Spontaneous
  Country: US (occurrence: None)
  Receive Date: 20220523
  Receipt Date: 20220523
  Transmission Date: 20220721
  Serious: Yes (Hospitalization)
  Sender: FDA-Public Use
  Company Number: None

PATIENT
  Age: 58 Year
  Sex: Male
  Weight: 119 kg

DRUGS (1)
  1. CLOZAPINE [Suspect]
     Active Substance: CLOZAPINE
     Indication: Schizophrenia
     Dosage: 1 TAB  AM PO?
     Route: 048
     Dates: start: 20210524, end: 20210616

REACTIONS (3)
  - Diabetic ketoacidosis [None]
  - Hypertensive emergency [None]
  - Toxic encephalopathy [None]

NARRATIVE: CASE EVENT DATE: 20210616
